FAERS Safety Report 23520433 (Version 1)
Quarter: 2024Q1

REPORT INFORMATION
  Report Type: 
  Country: None (occurrence: None)
  Receive Date: 20240214
  Receipt Date: 20240214
  Transmission Date: 20240409
  Serious: No
  Sender: FDA-Public Use
  Company Number: CA-ROCHE-2499007

PATIENT
  Age: 32 Year
  Weight: 58 kg

DRUGS (8)
  1. OCREVUS [Suspect]
     Active Substance: OCRELIZUMAB
     Dosage: 300 MG AT DAY 0 AND 14, THEN 600 MG EVERY 6 MONTH.
     Dates: start: 2016
  2. OCREVUS [Suspect]
     Active Substance: OCRELIZUMAB
     Dosage: 300 MG AT DAY 0 AND 14, THEN 600 MG EVERY 6 MONTH.
     Dates: start: 20181218
  3. OCREVUS [Suspect]
     Active Substance: OCRELIZUMAB
     Dosage: 600 MG EVERY 6 MONTH.
  4. BENADRYL [Suspect]
     Active Substance: DIPHENHYDRAMINE HYDROCHLORIDE
  5. FLUOXETINE [Concomitant]
     Active Substance: FLUOXETINE HYDROCHLORIDE
  6. YASMIN [Concomitant]
     Active Substance: DROSPIRENONE\ETHINYL ESTRADIOL
  7. AMOXICILLIN\CLAVULANIC ACID [Concomitant]
     Active Substance: AMOXICILLIN\CLAVULANIC ACID
  8. ADVIL [Concomitant]
     Active Substance: IBUPROFEN

REACTIONS (46)
  - Meningitis viral [None]
  - Pneumonia [None]
  - Conjunctivitis [None]
  - Depression [None]
  - Menstruation irregular [None]
  - Vaginal discharge [None]
  - Eye infection [None]
  - Asthenia [None]
  - Abdominal pain upper [None]
  - Chalazion [None]
  - Fatigue [None]
  - Dizziness [None]
  - Headache [None]
  - Feeling hot [None]
  - Oropharyngeal pain [None]
  - Impatience [None]
  - Nasopharyngitis [None]
  - Pain [None]
  - Pain in extremity [None]
  - Neuralgia [None]
  - Gastrointestinal disorder [None]
  - Paraesthesia [None]
  - Pyrexia [None]
  - Gastroenteritis viral [None]
  - Maternal exposure before pregnancy [None]
  - Nausea [None]
  - Stress [None]
  - Gait disturbance [None]
  - Blood pressure decreased [None]
  - Uterine contractions abnormal [None]
  - Panic attack [None]
  - Hiccups [None]
  - Infusion related reaction [None]
  - Cough [None]
  - Sinusitis [None]
  - Sinusitis [None]
  - Musculoskeletal stiffness [None]
  - Pruritus [None]
  - Influenza [None]
  - Illness [None]
  - Eye infection [None]
  - Hypersensitivity [None]
  - Hypoaesthesia [None]
  - Polymenorrhoea [None]
  - Rhinitis [None]
  - Ear infection [None]

NARRATIVE: CASE EVENT DATE: 20181201
